FAERS Safety Report 6794374-4 (Version None)
Quarter: 2010Q2

REPORT INFORMATION
  Report Type: 
  Country: None (occurrence: None)
  Receive Date: 20100625
  Receipt Date: 20100616
  Transmission Date: 20101027
  Serious: No
  Sender: FDA-Public Use
  Company Number: US-BIOGENIDEC-2010BI020815

PATIENT
  Sex: Female

DRUGS (1)
  1. TYSABRI [Suspect]
     Indication: MULTIPLE SCLEROSIS
     Route: 042
     Dates: start: 20091218

REACTIONS (6)
  - ASTHENIA [None]
  - DIPLOPIA [None]
  - DRUG SPECIFIC ANTIBODY PRESENT [None]
  - HEADACHE [None]
  - INTELLIGENCE TEST ABNORMAL [None]
  - MEMORY IMPAIRMENT [None]
